FAERS Safety Report 12457666 (Version 2)
Quarter: 2016Q3

REPORT INFORMATION
  Report Type: Spontaneous
  Country: US (occurrence: US)
  Receive Date: 20160610
  Receipt Date: 20160901
  Transmission Date: 20161109
  Serious: Yes (Death)
  Sender: FDA-Public Use
  Company Number: US-RELYPSA-RLY2016000907

PATIENT
  Age: 83 Year
  Sex: Male

DRUGS (8)
  1. LACTULOSE. [Concomitant]
     Active Substance: LACTULOSE
  2. VELTASSA [Suspect]
     Active Substance: PATIROMER
     Indication: PRODUCT USED FOR UNKNOWN INDICATION
     Route: 065
  3. ACTOS [Concomitant]
     Active Substance: PIOGLITAZONE HYDROCHLORIDE
  4. LASIX [Concomitant]
     Active Substance: FUROSEMIDE
  5. CALCITRIOL. [Concomitant]
     Active Substance: CALCITRIOL
  6. GLIPIZIDE. [Concomitant]
     Active Substance: GLIPIZIDE
  7. PROCRIT [Concomitant]
     Active Substance: ERYTHROPOIETIN
  8. NORVASC [Concomitant]
     Active Substance: AMLODIPINE BESYLATE

REACTIONS (1)
  - Death [Fatal]

NARRATIVE: CASE EVENT DATE: 20160503
